FAERS Safety Report 16573488 (Version 1)
Quarter: 2019Q3

REPORT INFORMATION
  Report Type: Spontaneous
  Country: SE (occurrence: SE)
  Receive Date: 20190715
  Receipt Date: 20190715
  Transmission Date: 20191004
  Serious: Yes (Hospitalization, Other)
  Sender: FDA-Public Use
  Company Number: SE-TEVA-2019-SE-1077045

PATIENT
  Age: 33 Year
  Sex: Female

DRUGS (8)
  1. LEVAXIN 125 MIKROGRAM TABLETT [Concomitant]
     Dosage: 125 MICROGRAM PER DAY
     Route: 048
     Dates: start: 20161117
  2. CYKLOKAPRON 500 MG FILMDRAGERAD TABLETT [Concomitant]
     Dosage: 2 X 3 DAILY IF REQUIRED
     Route: 048
     Dates: start: 20190129
  3. AMLODIPINE [Concomitant]
     Active Substance: AMLODIPINE BESYLATE
     Dosage: 5MG PER DAY
     Route: 048
     Dates: start: 20190126
  4. VENTOLINE DISKUS 0,2 MG/DOS INHALATIONSPULVER, AVDELAD DOS [Concomitant]
     Dosage: 1 IF REQUIRED, MAX 6
     Route: 055
     Dates: start: 20160520
  5. CETIRIZINE [Concomitant]
     Active Substance: CETIRIZINE HYDROCHLORIDE
     Dosage: 1X1 IF NEEDED
     Route: 048
     Dates: start: 20160521
  6. PANTOPRAZOLE [Suspect]
     Active Substance: PANTOPRAZOLE
     Dosage: 40MG PER DAY
     Route: 048
     Dates: end: 201902
  7. ALVEDON 500 MG FILMDRAGERAD TABLETT [Concomitant]
     Active Substance: ACETAMINOPHEN
     Dosage: 1-2 IF NEEDED, MAXIMUM 8 / DAY
     Route: 048
     Dates: start: 20180905
  8. METFORMIN [Concomitant]
     Active Substance: METFORMIN HYDROCHLORIDE
     Dosage: 1000MG PER DAY
     Route: 048
     Dates: start: 20170626

REACTIONS (2)
  - Vasculitis [Not Recovered/Not Resolved]
  - Cutaneous vasculitis [Not Recovered/Not Resolved]

NARRATIVE: CASE EVENT DATE: 20190208
